FAERS Safety Report 19011325 (Version 2)
Quarter: 2021Q1

REPORT INFORMATION
  Report Type: Report from Study
  Country: US (occurrence: US)
  Receive Date: 20210315
  Receipt Date: 20210317
  Transmission Date: 20210420
  Serious: No
  Sender: FDA-Public Use
  Company Number: NVSC2021US054978

PATIENT
  Age: 4 Month
  Sex: Female

DRUGS (1)
  1. ZOLGENSMA [Suspect]
     Active Substance: ONASEMNOGENE ABEPARVOVEC-XIOI
     Indication: SPINAL MUSCULAR ATROPHY
     Dosage: 1.1 MG/KG, ONCE/SINGLE (1.1?10^14(VG/KG))
     Route: 042
     Dates: start: 20210308, end: 20210308

REACTIONS (4)
  - Fatigue [Unknown]
  - Flushing [Unknown]
  - Irritability [Unknown]
  - Somnolence [Unknown]

NARRATIVE: CASE EVENT DATE: 20210308
